FAERS Safety Report 6859565 (Version 4)
Quarter: 2013Q1

REPORT INFORMATION
  Report Type: Spontaneous
  Country: GB (occurrence: GB)
  Receive Date: 20081218
  Receipt Date: 20130321
  Transmission Date: 20140127
  Serious: Yes (Death)
  Sender: FDA-Public Use
  Company Number: PHHY2008GB31524

PATIENT
  Age: 46 Year
  Sex: Female

DRUGS (5)
  1. CLOZARIL [Suspect]
     Indication: SCHIZOPHRENIA
     Dosage: UNK UKN, UNK
     Dates: start: 19941107
  2. CLOZARIL [Suspect]
     Dosage: 100 MG/DAY
     Route: 048
     Dates: start: 19970101
  3. CLOZARIL [Suspect]
     Dosage: UNK UKN, UNK
     Route: 048
     Dates: start: 20010701
  4. FLUOXETINE [Concomitant]
     Indication: DEPRESSED MOOD
     Dosage: 20 MG, UNK
     Route: 048
     Dates: start: 19970101, end: 20081201
  5. NICOTINE [Concomitant]

REACTIONS (8)
  - Neoplasm malignant [Fatal]
  - Sarcoma [Fatal]
  - Metastasis [Fatal]
  - Myalgia [Fatal]
  - Pain [Fatal]
  - Fatigue [Fatal]
  - Weight decreased [Not Recovered/Not Resolved]
  - White blood cell count increased [Unknown]
